FAERS Safety Report 7368402-1 (Version None)
Quarter: 2011Q1

REPORT INFORMATION
  Report Type: 
  Country: None (occurrence: None)
  Receive Date: 20110311
  Receipt Date: 20110302
  Transmission Date: 20110831
  Serious: Yes (Hospitalization)
  Sender: FDA-Public Use
  Company Number: 028474

PATIENT
  Age: 39 Year
  Sex: Male

DRUGS (3)
  1. KEPPRA [Suspect]
     Dosage: (1000 MG QD ORAL) ; (2000 MG QD ORAL)
     Route: 048
     Dates: start: 20101116, end: 20110110
  2. KEPPRA [Suspect]
     Dosage: (1000 MG QD ORAL) ; (2000 MG QD ORAL)
     Route: 048
     Dates: start: 20110111, end: 20110223
  3. BLONANSERIN (LONANSEN) [Suspect]
     Dosage: (6 MG ORAL)
     Route: 048
     Dates: start: 20100301, end: 20110223

REACTIONS (1)
  - NEUROLEPTIC MALIGNANT SYNDROME [None]
